FAERS Safety Report 4904886-3 (Version None)
Quarter: 2006Q1

REPORT INFORMATION
  Report Type: 
  Country: None (occurrence: None)
  Receive Date: 20060208
  Receipt Date: 20051017
  Transmission Date: 20060701
  Serious: No
  Sender: FDA-Public Use
  Company Number: US-GLAXOSMITHKLINE-A0578694A

PATIENT
  Age: 61 Year
  Sex: Female

DRUGS (4)
  1. PAXIL [Suspect]
     Dosage: 40MG PER DAY
     Route: 048
     Dates: start: 19951017, end: 20051013
  2. ALPRAZOLAM [Concomitant]
  3. ALLEGRA [Concomitant]
  4. EFFEXOR [Concomitant]
     Route: 065

REACTIONS (10)
  - BODY TEMPERATURE FLUCTUATION [None]
  - CONSTIPATION [None]
  - CRYING [None]
  - DEPRESSION [None]
  - DIARRHOEA [None]
  - DRUG WITHDRAWAL SYNDROME [None]
  - FATIGUE [None]
  - HYPERHIDROSIS [None]
  - MALAISE [None]
  - WEIGHT DECREASED [None]
